FAERS Safety Report 9744596 (Version 6)
Quarter: 2014Q2

REPORT INFORMATION
  Report Type: Report from Study
  Country: US (occurrence: CA)
  Receive Date: 20131210
  Receipt Date: 20140529
  Transmission Date: 20141212
  Serious: Yes (Death, Hospitalization)
  Sender: FDA-Public Use
  Company Number: US-CELGENEUS-028-21880-13070395

PATIENT
  Age: 79 Year
  Sex: Male
  Weight: 75.6 kg

DRUGS (43)
  1. REVLIMID [Suspect]
     Indication: PLASMA CELL MYELOMA
     Dosage: 25 MILLIGRAM
     Route: 048
     Dates: start: 20130628, end: 20130702
  2. REVLIMID [Suspect]
     Indication: PLASMA CELL MYELOMA
  3. ELOTUZUMAB [Suspect]
     Indication: PLASMA CELL MYELOMA
     Route: 065
  4. DEXAMETHASONE [Suspect]
     Indication: PLASMA CELL MYELOMA
     Route: 048
     Dates: start: 20130624, end: 20130626
  5. DEXAMETHASONE [Suspect]
     Indication: PLASMA CELL MYELOMA
     Dosage: 40 MILLIGRAM
     Route: 048
     Dates: start: 20130628, end: 20130628
  6. PROSCAR [Concomitant]
     Indication: PRODUCT USED FOR UNKNOWN INDICATION
     Route: 065
     Dates: start: 2011
  7. HYDROMORPH CONTIN [Concomitant]
     Indication: PRODUCT USED FOR UNKNOWN INDICATION
     Route: 065
     Dates: start: 201305
  8. HYDROMORPHONE [Concomitant]
     Indication: PRODUCT USED FOR UNKNOWN INDICATION
     Route: 065
     Dates: start: 201305
  9. POLYETHYLENE GLYCOL 3350 [Concomitant]
     Indication: PRODUCT USED FOR UNKNOWN INDICATION
     Route: 065
     Dates: start: 201305, end: 20130630
  10. LACTULOSE [Concomitant]
     Indication: PRODUCT USED FOR UNKNOWN INDICATION
     Route: 065
     Dates: start: 201305
  11. DULCOLAX [Concomitant]
     Indication: PRODUCT USED FOR UNKNOWN INDICATION
     Route: 054
     Dates: start: 201305
  12. GRAVOL [Concomitant]
     Indication: PRODUCT USED FOR UNKNOWN INDICATION
     Route: 065
     Dates: start: 20130602
  13. MAXERAN [Concomitant]
     Indication: PRODUCT USED FOR UNKNOWN INDICATION
     Route: 065
     Dates: start: 20130602
  14. ZOFRAN [Concomitant]
     Indication: ADVERSE EVENT
     Route: 065
     Dates: start: 20130621
  15. TERAZOSIN [Concomitant]
     Indication: PRODUCT USED FOR UNKNOWN INDICATION
     Route: 065
     Dates: start: 2011
  16. PAMIDRONATE [Concomitant]
     Indication: PRODUCT USED FOR UNKNOWN INDICATION
     Route: 065
     Dates: start: 20130624, end: 20130624
  17. ZOMETA [Concomitant]
     Indication: ADVERSE EVENT
     Route: 065
     Dates: start: 20130628, end: 20130628
  18. ASA [Concomitant]
     Indication: PRODUCT USED FOR UNKNOWN INDICATION
     Route: 065
     Dates: start: 20130613
  19. ZANTAC [Concomitant]
     Indication: PRODUCT USED FOR UNKNOWN INDICATION
     Route: 065
     Dates: start: 201305
  20. DIOVOL [Concomitant]
     Indication: PRODUCT USED FOR UNKNOWN INDICATION
     Route: 065
     Dates: start: 201305
  21. SENOKOT [Concomitant]
     Indication: PRODUCT USED FOR UNKNOWN INDICATION
     Route: 065
     Dates: start: 20130615, end: 20130701
  22. VITAMIN K [Concomitant]
     Indication: INTERNATIONAL NORMALISED RATIO INCREASED
     Route: 065
     Dates: start: 20130627, end: 20130701
  23. PANTALOC [Concomitant]
     Indication: PRODUCT USED FOR UNKNOWN INDICATION
     Route: 065
     Dates: start: 20130624, end: 20130703
  24. SCOPOLAMINE [Concomitant]
     Indication: PRODUCT USED FOR UNKNOWN INDICATION
     Route: 065
     Dates: start: 20130625, end: 20130701
  25. COLACE [Concomitant]
     Indication: PRODUCT USED FOR UNKNOWN INDICATION
     Route: 065
     Dates: start: 20130627, end: 20130702
  26. FINASTERIDE [Concomitant]
     Indication: PRODUCT USED FOR UNKNOWN INDICATION
     Route: 065
     Dates: start: 20130627
  27. SODIUM PHOSPHATE [Concomitant]
     Indication: ADVERSE EVENT
     Route: 065
     Dates: start: 20130630, end: 20130702
  28. POTASSIUM CHLORIDE [Concomitant]
     Indication: ADVERSE EVENT
     Route: 065
     Dates: start: 20130702, end: 20130702
  29. POTASSIUM PHOSPHATE [Concomitant]
     Indication: PRODUCT USED FOR UNKNOWN INDICATION
     Route: 065
     Dates: start: 20130702, end: 20130702
  30. INSULIN INFUSION [Concomitant]
     Indication: ADVERSE EVENT
     Route: 065
     Dates: start: 20130702, end: 20130702
  31. LEVOPHED [Concomitant]
     Indication: ADVERSE EVENT
     Route: 065
     Dates: start: 20130703, end: 20130703
  32. VASOPRESSIN [Concomitant]
     Indication: ADVERSE EVENT
     Route: 065
     Dates: start: 20130703, end: 20130703
  33. FENTANYL [Concomitant]
     Indication: PRODUCT USED FOR UNKNOWN INDICATION
     Route: 065
     Dates: start: 20130703, end: 20130703
  34. PROPOFOL [Concomitant]
     Indication: ADVERSE EVENT
     Route: 065
     Dates: start: 20130703, end: 20130703
  35. CISATRACURIUM BESYLATE [Concomitant]
     Indication: ADVERSE EVENT
     Route: 065
     Dates: start: 20130703, end: 20130703
  36. PIPERACILLIN/TAZOBACTAM [Concomitant]
     Indication: ADVERSE EVENT
     Route: 065
     Dates: start: 20130702, end: 20130703
  37. VANCOMYCIN [Concomitant]
     Indication: ADVERSE EVENT
     Route: 065
     Dates: start: 20130703, end: 20130703
  38. FLUCONAZOLE [Concomitant]
     Indication: ADVERSE EVENT
     Route: 065
     Dates: start: 20130701, end: 20130702
  39. GLYCERIN [Concomitant]
     Indication: PRODUCT USED FOR UNKNOWN INDICATION
     Route: 054
     Dates: start: 201305
  40. MACROBID [Concomitant]
     Indication: PRODUCT USED FOR UNKNOWN INDICATION
     Route: 065
     Dates: start: 20130609, end: 20130624
  41. HYDRATION [Concomitant]
     Indication: PRODUCT USED FOR UNKNOWN INDICATION
     Route: 041
  42. OXYGEN [Concomitant]
     Indication: DYSPNOEA
     Route: 065
  43. NORMAL SALINE [Concomitant]
     Indication: PRODUCT USED FOR UNKNOWN INDICATION
     Route: 050
     Dates: start: 20130621, end: 20130630

REACTIONS (6)
  - Plasma cell myeloma [Fatal]
  - Urinary tract infection [Fatal]
  - Urinary tract infection [Recovered/Resolved]
  - Nausea [Not Recovered/Not Resolved]
  - Vomiting [Recovered/Resolved]
  - Dehydration [Recovered/Resolved]
